FAERS Safety Report 16937538 (Version 1)
Quarter: 2019Q4

REPORT INFORMATION
  Report Type: Spontaneous
  Country: US (occurrence: US)
  Receive Date: 20191018
  Receipt Date: 20191018
  Transmission Date: 20200122
  Serious: Yes (Hospitalization)
  Sender: FDA-Public Use
  Company Number: NVSC2019US007107

PATIENT
  Age: 90 Year
  Sex: Female

DRUGS (1)
  1. PREDNISONE. [Suspect]
     Active Substance: PREDNISONE
     Indication: ASTHMA
     Route: 065

REACTIONS (6)
  - Melaena [Not Recovered/Not Resolved]
  - Inflammation [Unknown]
  - Faeces discoloured [Not Recovered/Not Resolved]
  - Strongyloidiasis [Not Recovered/Not Resolved]
  - Oedema [Unknown]
  - Hypotension [Not Recovered/Not Resolved]
